FAERS Safety Report 8917811 (Version 2)
Quarter: 2013Q2

REPORT INFORMATION
  Report Type: Report from Study
  Country: BR (occurrence: BR)
  Receive Date: 20121120
  Receipt Date: 20130526
  Transmission Date: 20140414
  Serious: Yes (Other)
  Sender: FDA-Public Use
  Company Number: BR-US-EMD SERONO, INC.-7173645

PATIENT
  Sex: Female

DRUGS (4)
  1. REBIF [Suspect]
     Indication: RELAPSING-REMITTING MULTIPLE SCLEROSIS
     Dates: start: 20120703
  2. REBIF [Suspect]
     Dates: start: 2012
  3. PARACETAMOL [Concomitant]
     Indication: PRODUCT USED FOR UNKNOWN INDICATION
  4. VESICARE [Concomitant]
     Indication: PRODUCT USED FOR UNKNOWN INDICATION

REACTIONS (17)
  - Choking [Unknown]
  - Feeding disorder [Unknown]
  - Motor dysfunction [Not Recovered/Not Resolved]
  - Dysstasia [Unknown]
  - Speech disorder [Unknown]
  - Phonological disorder [Unknown]
  - Dysphagia [Unknown]
  - Apathy [Unknown]
  - Constipation [Unknown]
  - Asthenia [Unknown]
  - Disease progression [Unknown]
  - Ataxia [Unknown]
  - Movement disorder [Unknown]
  - Trismus [Unknown]
  - Body temperature increased [Unknown]
  - Injection site erythema [Unknown]
  - Inappropriate schedule of drug administration [Unknown]
